FAERS Safety Report 5283698-8 (Version None)
Quarter: 2007Q2

REPORT INFORMATION
  Report Type: 
  Country: None (occurrence: None)
  Receive Date: 20070402
  Receipt Date: 20070228
  Transmission Date: 20071010
  Serious: No
  Sender: FDA-Public Use
  Company Number: 2006UW08249

PATIENT
  Sex: Female
  Weight: 45.5 kg

DRUGS (8)
  1. SEROQUEL [Suspect]
     Indication: SCHIZOPHRENIA
     Route: 048
     Dates: start: 20040801, end: 20050101
  2. SEROQUEL [Suspect]
     Indication: BIPOLAR DISORDER
     Route: 048
     Dates: start: 20040801, end: 20050101
  3. SEROQUEL [Suspect]
     Indication: DEPRESSION
     Route: 048
     Dates: start: 20040801, end: 20050101
  4. ABILIFY [Concomitant]
     Dates: start: 20040801, end: 20050101
  5. GEODON [Concomitant]
     Dates: start: 20030601, end: 20070101
  6. HALDOL [Concomitant]
     Dates: start: 19850101, end: 19990101
  7. RISPERDAL [Concomitant]
     Dates: start: 20070101
  8. ZYPREXA [Concomitant]
     Dates: start: 20001201, end: 20050101

REACTIONS (1)
  - DIABETES MELLITUS NON-INSULIN-DEPENDENT [None]
